FAERS Safety Report 6636076-0 (Version None)
Quarter: 2010Q1

REPORT INFORMATION
  Report Type: 
  Country: None (occurrence: None)
  Receive Date: 20100310
  Receipt Date: 20100222
  Transmission Date: 20100710
  Serious: Yes (Death, Life-Threatening, Hospitalization)
  Sender: FDA-Public Use
  Company Number: 1-21649320

PATIENT
  Age: 66 Year
  Sex: Female

DRUGS (8)
  1. WARFARIN SODIUM [Suspect]
     Indication: THROMBOSIS PROPHYLAXIS
     Dosage: ONCE DAILY, ORAL
     Route: 048
     Dates: start: 20090710, end: 20100126
  2. SIMVASTATIN [Concomitant]
  3. DIGOXIN [Concomitant]
  4. FUROSEMIDE [Concomitant]
  5. CILAZAPRIL [Concomitant]
  6. CORONGIN [Concomitant]
  7. DILTIAZEM CD [Concomitant]
  8. METOPROLOL [Concomitant]

REACTIONS (13)
  - AGITATION [None]
  - BLOOD GLUCOSE INCREASED [None]
  - BLOOD PRESSURE INCREASED [None]
  - CYANOSIS [None]
  - DYSPNOEA [None]
  - HAEMATOCRIT INCREASED [None]
  - HAEMOGLOBIN INCREASED [None]
  - ISCHAEMIC CEREBRAL INFARCTION [None]
  - LOSS OF CONSCIOUSNESS [None]
  - MYDRIASIS [None]
  - UNRESPONSIVE TO STIMULI [None]
  - VOMITING [None]
  - WHITE BLOOD CELL COUNT INCREASED [None]
